FAERS Safety Report 23936427 (Version 1)
Quarter: 2024Q2

REPORT INFORMATION
  Report Type: Spontaneous
  Country: US (occurrence: US)
  Receive Date: 20240604
  Receipt Date: 20240604
  Transmission Date: 20240715
  Serious: Yes (Other)
  Sender: FDA-Public Use
  Company Number: US-BRISTOL-MYERS SQUIBB COMPANY-2024-086485

PATIENT
  Age: 45 Year
  Sex: Female

DRUGS (1)
  1. ZEPOSIA [Suspect]
     Active Substance: OZANIMOD HYDROCHLORIDE
     Indication: Colitis ulcerative
     Dosage: ZEPOSIA (7 DAY STARTER PAK)
     Route: 048
     Dates: start: 202403

REACTIONS (4)
  - Inflammatory bowel disease [Unknown]
  - Pain [Unknown]
  - Discomfort [Unknown]
  - Asthenia [Unknown]
